FAERS Safety Report 18564241 (Version 2)
Quarter: 2020Q4

REPORT INFORMATION
  Report Type: Spontaneous
  Country: FR (occurrence: FR)
  Receive Date: 20201201
  Receipt Date: 20201224
  Transmission Date: 20210114
  Serious: Yes (Hospitalization, Other)
  Sender: FDA-Public Use
  Company Number: FR-AUROBINDO-AUR-APL-2020-059271

PATIENT
  Age: 76 Year
  Sex: Male
  Weight: 60 kg

DRUGS (8)
  1. PARACETAMOL [Suspect]
     Active Substance: ACETAMINOPHEN
     Indication: PAIN
     Dosage: 1 DOSAGE FORM
     Route: 048
  2. MAGNE B6 [Suspect]
     Active Substance: MAGNESIUM\PYRIDOXINE
     Indication: MINERAL SUPPLEMENTATION
     Dosage: 2 DOSAGE FORM, ONCE A DAY
     Route: 048
  3. SELPERCATINIB. [Suspect]
     Active Substance: SELPERCATINIB
     Indication: MEDULLARY THYROID CANCER
     Dosage: 160 MILLIGRAM, ONCE A DAY
     Route: 048
     Dates: start: 20200901
  4. LACTULOSE. [Suspect]
     Active Substance: LACTULOSE
     Indication: CONSTIPATION
     Dosage: 2 DOSAGE FORM, ONCE A DAY
     Route: 048
  5. OXYCODONE [Suspect]
     Active Substance: OXYCODONE
     Indication: PAIN
     Dosage: 50 MILLIGRAM, ONCE A DAY
     Route: 048
  6. CALCIUM CARBONATE. [Suspect]
     Active Substance: CALCIUM CARBONATE
     Indication: MINERAL SUPPLEMENTATION
     Dosage: 500 MILLIGRAM, ONCE A DAY
     Route: 048
  7. LEVOTHYROX [Suspect]
     Active Substance: LEVOTHYROXINE
     Indication: HYPOTHYROIDISM
     Dosage: 137 MICROGRAM, ONCE A DAY
     Route: 048
     Dates: start: 2006
  8. ALFACALCIDOL [Suspect]
     Active Substance: ALFACALCIDOL
     Indication: VITAMIN SUPPLEMENTATION
     Dosage: 0.5 MILLIGRAM, ONCE A DAY
     Route: 048

REACTIONS (2)
  - Deep vein thrombosis [Recovering/Resolving]
  - Pulmonary embolism [Recovering/Resolving]

NARRATIVE: CASE EVENT DATE: 202009
